FAERS Safety Report 21916614 (Version 1)
Quarter: 2023Q1

REPORT INFORMATION
  Report Type: Spontaneous
  Country: CA (occurrence: CA)
  Receive Date: 20230126
  Receipt Date: 20230126
  Transmission Date: 20230418
  Serious: Yes (Life-Threatening, Hospitalization)
  Sender: FDA-Public Use
  Company Number: CA-PFIZER INC-202300038364

PATIENT
  Age: 7 Month
  Sex: Male
  Weight: 7 kg

DRUGS (4)
  1. METHOTREXATE SODIUM [Suspect]
     Active Substance: METHOTREXATE SODIUM
     Dosage: UNK
  2. VINCRISTINE SULFATE [Suspect]
     Active Substance: VINCRISTINE SULFATE
  3. CYTARABINE [Suspect]
     Active Substance: CYTARABINE
  4. PEGASPARGASE [Suspect]
     Active Substance: PEGASPARGASE
     Route: 065

REACTIONS (1)
  - Febrile neutropenia [Recovered/Resolved]
